FAERS Safety Report 24277571 (Version 2)
Quarter: 2024Q4

REPORT INFORMATION
  Report Type: Report from Study
  Country: US (occurrence: US)
  Receive Date: 20240903
  Receipt Date: 20241008
  Transmission Date: 20250115
  Serious: Yes (Death)
  Sender: OTSUKA
  Company Number: US-OTSUKA-2024_024107

PATIENT
  Age: 81 Year
  Sex: Female

DRUGS (5)
  1. BREXPIPRAZOLE [Suspect]
     Active Substance: BREXPIPRAZOLE
     Indication: Dementia
     Dosage: 2 MG
     Route: 065
     Dates: start: 20240422, end: 20240527
  2. BREXPIPRAZOLE [Suspect]
     Active Substance: BREXPIPRAZOLE
     Indication: Dementia Alzheimer^s type
     Dosage: 3 MG
     Route: 065
     Dates: start: 20240528, end: 20240615
  3. SEROQUEL [Concomitant]
     Active Substance: QUETIAPINE FUMARATE
     Indication: Product used for unknown indication
     Dosage: 50 MG
     Route: 065
  4. CARBAMAZEPINE [Concomitant]
     Active Substance: CARBAMAZEPINE
     Indication: Product used for unknown indication
     Dosage: 100 MG
     Route: 065
  5. SERTRALINE [Concomitant]
     Active Substance: SERTRALINE HYDROCHLORIDE
     Indication: Product used for unknown indication
     Dosage: 20 MG/ML
     Route: 065

REACTIONS (2)
  - Death [Fatal]
  - Therapy cessation [Unknown]

NARRATIVE: CASE EVENT DATE: 20240616
